FAERS Safety Report 12313883 (Version 2)
Quarter: 2016Q2

REPORT INFORMATION
  Report Type: Spontaneous
  Country: IT (occurrence: IT)
  Receive Date: 20160428
  Receipt Date: 20160429
  Transmission Date: 20160815
  Serious: Yes (Death)
  Sender: FDA-Public Use
  Company Number: IT-TEVA-654487ACC

PATIENT
  Age: 82 Year
  Sex: Female

DRUGS (4)
  1. AMIODARONE HYDROCHLORIDE. [Suspect]
     Active Substance: AMIODARONE HYDROCHLORIDE
     Indication: ATRIAL FIBRILLATION
     Dosage: 400 MILLIGRAM DAILY;
     Route: 048
     Dates: start: 20160405, end: 20160412
  2. CALCIPARINA - 12500 UI/0.5 ML SOLUZIONE INIETTABILE [Concomitant]
     Indication: PRODUCT USED FOR UNKNOWN INDICATION
     Dosage: 2 DF
  3. LEVOXACIN - 250 MG COMPRESSE RIVESTITE CON FILM [Suspect]
     Active Substance: LEVOFLOXACIN
     Indication: ASTHMA
     Dosage: 250 MILLIGRAM DAILY;
     Route: 048
     Dates: start: 20160402, end: 20160412
  4. TAZOCIN - 4 G + 0.500 G POLVERE PER SOLUZIONE PER INFUSIONE [Suspect]
     Active Substance: PIPERACILLIN SODIUM\TAZOBACTAM SODIUM
     Indication: ASTHMA
     Dosage: 2 DOSAGE FORMS DAILY;
     Route: 042
     Dates: start: 20160402, end: 20160412

REACTIONS (3)
  - Lactic acidosis [Fatal]
  - Shock haemorrhagic [Fatal]
  - Acute hepatic failure [Fatal]

NARRATIVE: CASE EVENT DATE: 20160412
